FAERS Safety Report 10422756 (Version 2)
Quarter: 2014Q3

REPORT INFORMATION
  Report Type: Spontaneous
  Country: JP (occurrence: JP)
  Receive Date: 20140902
  Receipt Date: 20140916
  Transmission Date: 20150326
  Serious: Yes (Hospitalization)
  Sender: FDA-Public Use
  Company Number: JP-ROCHE-1456184

PATIENT
  Age: 9 Decade
  Sex: Female

DRUGS (7)
  1. UNISIA [Concomitant]
     Active Substance: AMLODIPINE BESYLATE\CANDESARTAN CILEXETIL
     Dosage: DOSAGE IS UNCERTAIN.
     Route: 048
  2. FRANDOL S [Concomitant]
     Dosage: DOSAGE IS UNCERTAIN.
     Route: 062
  3. LOXONIN [Concomitant]
     Active Substance: LOXOPROFEN SODIUM
     Dosage: DOSAGE IS UNCERTAIN.
     Route: 061
  4. BONVIVA [Suspect]
     Active Substance: IBANDRONATE SODIUM
     Indication: OSTEOPOROSIS
     Dosage: DOSAGE IS UNCERTAIN.
     Route: 042
     Dates: start: 2014
  5. CALFINA [Concomitant]
     Dosage: DOSAGE IS UNCERTAIN.
     Route: 048
  6. FUROSEMIDE. [Concomitant]
     Active Substance: FUROSEMIDE
     Dosage: DOSAGE IS UNCERTAIN.
     Route: 048
  7. KARY UNI [Concomitant]
     Active Substance: PIRENOXINE
     Dosage: DOSAGE IS UNCERTAIN.
     Route: 047

REACTIONS (3)
  - Muscular weakness [Unknown]
  - Malaise [Unknown]
  - Feeling abnormal [Unknown]

NARRATIVE: CASE EVENT DATE: 20140822
